FAERS Safety Report 5489757-9 (Version None)
Quarter: 2007Q4

REPORT INFORMATION
  Report Type: 
  Country: None (occurrence: None)
  Receive Date: 20071018
  Receipt Date: 20061127
  Transmission Date: 20080405
  Serious: Yes (Other)
  Sender: FDA-Public Use
  Company Number: US-ASTRAZENECA-2006UW18876

PATIENT
  Age: 10076 Day
  Sex: Female
  Weight: 93.2 kg

DRUGS (5)
  1. MERREM [Suspect]
     Indication: CHOLANGITIS
     Route: 042
     Dates: start: 20060810, end: 20060829
  2. MERREM [Suspect]
     Indication: PERITONITIS
     Route: 042
     Dates: start: 20060810, end: 20060829
  3. DARVOCET [Concomitant]
     Indication: PAIN
     Dosage: 5/325 DAILY
     Route: 048
  4. ACIPHEX [Concomitant]
     Indication: GASTROOESOPHAGEAL REFLUX DISEASE
     Route: 048
  5. BIRTH CONTROL PILLS [Concomitant]
     Indication: CONTRACEPTION
     Route: 048

REACTIONS (2)
  - AGRANULOCYTOSIS [None]
  - NEUTROPENIA [None]
